FAERS Safety Report 8475668-3 (Version None)
Quarter: 2012Q2

REPORT INFORMATION
  Report Type: 
  Country: None (occurrence: None)
  Receive Date: 20120628
  Receipt Date: 20120620
  Transmission Date: 20120825
  Serious: Yes (Other)
  Sender: FDA-Public Use
  Company Number: US-GLAXOSMITHKLINE-A0800765A

PATIENT
  Age: 41 Year
  Sex: Female
  Weight: 125 kg

DRUGS (9)
  1. LEVORA 0.15/30-21 [Concomitant]
  2. AVANDAMET [Suspect]
     Indication: DIABETES MELLITUS
     Route: 048
     Dates: start: 20050223, end: 20050401
  3. GLUCOTROL XL [Concomitant]
     Dates: start: 20051122
  4. GLUCOPHAGE [Concomitant]
  5. AVANDARYL [Suspect]
     Indication: DIABETES MELLITUS
     Route: 048
     Dates: start: 20000101, end: 20040101
  6. AVANDIA [Suspect]
     Indication: DIABETES MELLITUS
     Dosage: 8MG PER DAY
     Route: 048
     Dates: start: 20000101
  7. LIPITOR [Concomitant]
  8. ZOLOFT [Concomitant]
  9. HYZAAR [Concomitant]

REACTIONS (4)
  - SWELLING [None]
  - MYOCARDIAL INFARCTION [None]
  - HEART INJURY [None]
  - HYPOAESTHESIA [None]
